FAERS Safety Report 9072525 (Version 1)
Quarter: 2013Q1

REPORT INFORMATION
  Report Type: Report from Study
  Country: US (occurrence: US)
  Receive Date: 20130128
  Receipt Date: 20130128
  Transmission Date: 20140127
  Serious: No
  Sender: FDA-Public Use
  Company Number: US-ABBOTT-12P-163-0917645-00

PATIENT
  Age: 26 Year
  Sex: Female

DRUGS (5)
  1. HUMIRA 40 MG/0.8 ML PEN [Suspect]
     Indication: CROHN^S DISEASE
     Dates: start: 20120205
  2. PENTASA [Concomitant]
     Indication: PRODUCT USED FOR UNKNOWN INDICATION
     Dosage: 4 PILLS TWICE DAILY
  3. LEXAPRO [Concomitant]
     Indication: PRODUCT USED FOR UNKNOWN INDICATION
  4. BRTH CONTROL PILL [Concomitant]
     Indication: CONTRACEPTION
  5. PREVACID [Concomitant]
     Indication: PRODUCT USED FOR UNKNOWN INDICATION
     Dosage: TWICE DAILY

REACTIONS (5)
  - Injection site erythema [Recovering/Resolving]
  - Injection site oedema [Recovering/Resolving]
  - Injection site warmth [Recovering/Resolving]
  - Injection site pruritus [Recovering/Resolving]
  - Injection site bruising [Recovering/Resolving]
